FAERS Safety Report 12729588 (Version 1)
Quarter: 2016Q3

REPORT INFORMATION
  Report Type: Spontaneous
  Country: US (occurrence: US)
  Receive Date: 20160909
  Receipt Date: 20160909
  Transmission Date: 20161109
  Serious: Yes (Other)
  Sender: FDA-Public Use
  Company Number: None

PATIENT
  Age: 44 Year
  Sex: Female
  Weight: 89.89 kg

DRUGS (1)
  1. MIRENA [Suspect]
     Active Substance: LEVONORGESTREL

REACTIONS (12)
  - Anxiety [None]
  - Migraine [None]
  - Device dislocation [None]
  - Impaired work ability [None]
  - Panic attack [None]
  - Paraesthesia [None]
  - Chills [None]
  - Hypoaesthesia [None]
  - Hot flush [None]
  - Weight increased [None]
  - Palpitations [None]
  - Muscle twitching [None]

NARRATIVE: CASE EVENT DATE: 20160201
